FAERS Safety Report 17770119 (Version 1)
Quarter: 2020Q2

REPORT INFORMATION
  Report Type: Report from Study
  Country: IT (occurrence: IT)
  Receive Date: 20200512
  Receipt Date: 20200512
  Transmission Date: 20200714
  Serious: Yes (Other)
  Sender: FDA-Public Use
  Company Number: IT-PFIZER INC-2020183914

PATIENT
  Age: 26 Year
  Sex: Female

DRUGS (4)
  1. PREGABALIN. [Suspect]
     Active Substance: PREGABALIN
     Dosage: UNK
  2. CANNABIS SATIVA [Interacting]
     Active Substance: CANNABIS SATIVA FLOWERING TOP
     Indication: FIBROMYALGIA
     Dosage: 100 MG
     Route: 048
  3. CANNABIS SATIVA [Interacting]
     Active Substance: CANNABIS SATIVA FLOWERING TOP
     Indication: NEURALGIA
  4. CYCLOBENZAPRINE. [Interacting]
     Active Substance: CYCLOBENZAPRINE
     Dosage: UNK

REACTIONS (4)
  - Drug interaction [Unknown]
  - Somnolence [Recovering/Resolving]
  - Balance disorder [Recovering/Resolving]
  - Dizziness [Recovering/Resolving]
